FAERS Safety Report 23420647 (Version 1)
Quarter: 2024Q1

REPORT INFORMATION
  Report Type: Spontaneous
  Country: US (occurrence: US)
  Receive Date: 20240119
  Receipt Date: 20240119
  Transmission Date: 20240409
  Serious: Yes (Other)
  Sender: FDA-Public Use
  Company Number: US-ALEMBIC PHARMACUETICALS LIMITED-2024SCAL000021

PATIENT

DRUGS (4)
  1. CYCLOPHOSPHAMIDE [Suspect]
     Active Substance: CYCLOPHOSPHAMIDE
     Indication: Malignant hydatidiform mole
     Dosage: UNK
     Route: 065
  2. CISPLATIN\ETOPOSIDE [Suspect]
     Active Substance: CISPLATIN\ETOPOSIDE
     Indication: Malignant hydatidiform mole
     Dosage: UNK
     Route: 065
  3. METHOTREXATE [Suspect]
     Active Substance: METHOTREXATE
     Indication: Malignant hydatidiform mole
     Dosage: UNK
     Route: 065
  4. ACTINOMYCIN D [Suspect]
     Active Substance: DACTINOMYCIN
     Indication: Malignant hydatidiform mole
     Dosage: UNK
     Route: 065

REACTIONS (1)
  - Haemothorax [Recovering/Resolving]
